FAERS Safety Report 7657537-1 (Version None)
Quarter: 2011Q3

REPORT INFORMATION
  Report Type: 
  Country: None (occurrence: None)
  Receive Date: 20110804
  Receipt Date: 20110725
  Transmission Date: 20111222
  Serious: Yes (Hospitalization)
  Sender: FDA-Public Use
  Company Number: US-AMGEN-USASP2011037900

PATIENT
  Age: 64 Year
  Sex: Female

DRUGS (3)
  1. NAVELBINE [Concomitant]
  2. ARANESP [Suspect]
     Indication: ANAEMIA
     Dosage: UNK
     Dates: start: 20110713, end: 20110713
  3. HERCEPTIN [Concomitant]

REACTIONS (3)
  - MUSCULOSKELETAL CHEST PAIN [None]
  - DRUG INEFFECTIVE [None]
  - MOOD ALTERED [None]
